FAERS Safety Report 8774025 (Version 5)
Quarter: 2014Q4

REPORT INFORMATION
  Report Type: Spontaneous
  Country: US (occurrence: US)
  Receive Date: 20120908
  Receipt Date: 20141027
  Transmission Date: 20150529
  Serious: Yes (Hospitalization, Other)
  Sender: FDA-Public Use
  Company Number: US-009507513-1208USA011459

PATIENT
  Sex: Female
  Weight: 101.59 kg

DRUGS (3)
  1. FOSAMAX [Suspect]
     Active Substance: ALENDRONATE SODIUM
     Indication: OSTEOPOROSIS
     Dosage: 70 MG, QW
     Route: 048
     Dates: start: 20040413, end: 20070321
  2. FOSAMAX PLUS D [Suspect]
     Active Substance: ALENDRONATE SODIUM\CHOLECALCIFEROL
     Indication: OSTEOPOROSIS
     Dosage: 70MG-2800, QW
     Route: 048
     Dates: start: 20070321, end: 200901
  3. ALENDRONATE SODIUM. [Suspect]
     Active Substance: ALENDRONATE SODIUM
     Indication: OSTEOPOROSIS
     Dosage: 70 MG, QW
     Route: 048
     Dates: start: 20090210, end: 201011

REACTIONS (29)
  - Gastrointestinal disorder [Unknown]
  - Lipoma [Unknown]
  - Nephrolithiasis [Unknown]
  - Transfusion [Unknown]
  - Cough [Unknown]
  - Hyperlipidaemia [Unknown]
  - Pain [Unknown]
  - Obesity [Unknown]
  - Rotator cuff syndrome [Unknown]
  - Diverticulum intestinal [Unknown]
  - Femur fracture [Recovered/Resolved]
  - Atypical femur fracture [Unknown]
  - Hyperhidrosis [Unknown]
  - Blood cholesterol increased [Unknown]
  - Cough [Unknown]
  - Hyperparathyroidism [Unknown]
  - Hysterectomy [Unknown]
  - Gastrooesophageal reflux disease [Unknown]
  - Pain in extremity [Unknown]
  - Open reduction of fracture [Recovered/Resolved]
  - Cholecystectomy [Unknown]
  - Anaemia postoperative [Unknown]
  - Low turnover osteopathy [Unknown]
  - Depression [Unknown]
  - Sleep apnoea syndrome [Unknown]
  - Tendonitis [Unknown]
  - Anaemia [Unknown]
  - Anxiety [Unknown]
  - Fall [Unknown]

NARRATIVE: CASE EVENT DATE: 200609
